FAERS Safety Report 8487978-4 (Version None)
Quarter: 2012Q3

REPORT INFORMATION
  Report Type: 
  Country: None (occurrence: None)
  Receive Date: 20120705
  Receipt Date: 20120628
  Transmission Date: 20120928
  Serious: Yes (Other)
  Sender: FDA-Public Use
  Company Number: PHEH2012US012833

PATIENT
  Sex: Female

DRUGS (4)
  1. TEGRETOL [Suspect]
     Dosage: UNK UKN, UNK
  2. CARBAMAZEPINE [Suspect]
     Dosage: UNK UKN, UNK
  3. TEGRETOL [Suspect]
     Dosage: 100 MG, TID
  4. LAMICTAL [Concomitant]
     Dosage: UNK UKN, UNK

REACTIONS (7)
  - WRONG TECHNIQUE IN DRUG USAGE PROCESS [None]
  - GRAND MAL CONVULSION [None]
  - EXCESSIVE EYE BLINKING [None]
  - STARING [None]
  - TONIC CLONIC MOVEMENTS [None]
  - CONVULSION [None]
  - MUSCLE TWITCHING [None]
